FAERS Safety Report 6814253-3 (Version None)
Quarter: 2010Q3

REPORT INFORMATION
  Report Type: 
  Country: None (occurrence: None)
  Receive Date: 20100702
  Receipt Date: 20100621
  Transmission Date: 20110219
  Serious: Yes (Hospitalization)
  Sender: FDA-Public Use
  Company Number: US-ELI_LILLY_AND_COMPANY-US201006005774

PATIENT
  Sex: Female

DRUGS (15)
  1. FORTEO [Suspect]
     Indication: OSTEOPOROSIS
     Dosage: 20 UG, DAILY (1/D)
  2. XANAX [Concomitant]
     Dosage: 50 MG, DAILY (1/D)
  3. AMITRIPTYLINE [Concomitant]
     Dosage: 50 MG, 2/D
  4. LASIX [Concomitant]
     Dosage: 40 MG, DAILY (1/D)
  5. LYRICA [Concomitant]
     Dosage: 75 MG, 2/D
  6. TOPROL-XL [Concomitant]
     Dosage: 50 MG, DAILY (1/D)
  7. NEXIUM [Concomitant]
     Dosage: 40 MG, DAILY (1/D)
  8. SALAGEN [Concomitant]
     Dosage: 5 MG, 4/D
  9. POTASSIUM CHLORIDE [Concomitant]
     Dosage: 20 MG, DAILY (1/D)
  10. TOPAMAX [Concomitant]
     Dosage: 50 MG, DAILY (1/D)
  11. MILNACIPRAN [Concomitant]
     Dosage: 50 MG, DAILY (1/D)
  12. ZOCOR [Concomitant]
     Dosage: 20 MG, DAILY (1/D)
  13. VITAMIN D [Concomitant]
     Dosage: 50000 IU, WEEKLY (1/W)
  14. MULTI-VITAMIN [Concomitant]
     Dosage: UNK, DAILY (1/D)
  15. CALCIUM CARBONATE [Concomitant]
     Dosage: 600 MG, 3/D

REACTIONS (4)
  - ABDOMINAL DISTENSION [None]
  - INJECTION SITE PAIN [None]
  - SYSTEMIC LUPUS ERYTHEMATOSUS [None]
  - WAIST CIRCUMFERENCE INCREASED [None]
